FAERS Safety Report 9705184 (Version 1)
Quarter: 2013Q4

REPORT INFORMATION
  Report Type: Spontaneous
  Country: US (occurrence: US)
  Receive Date: 20131122
  Receipt Date: 20131122
  Transmission Date: 20140711
  Serious: Yes (Other)
  Sender: FDA-Public Use
  Company Number: US-SA-2013SA119323

PATIENT
  Age: 25 Year
  Sex: Female

DRUGS (2)
  1. CEREZYME [Suspect]
     Indication: GAUCHER^S DISEASE
     Dosage: DOSE:60 UNIT(S)/KILOGRAM BODYWEIGHT
     Route: 042
     Dates: start: 2002
  2. PRENATAL VITAMINS [Concomitant]
     Dosage: REPORTED INDICATION:PRENATAL HEALTH
     Dates: start: 200204, end: 2004

REACTIONS (4)
  - Haemorrhage [Recovered/Resolved]
  - Exposure during pregnancy [Unknown]
  - Mastitis [Recovered/Resolved]
  - Postpartum depression [Recovered/Resolved]
